FAERS Safety Report 17537605 (Version 1)
Quarter: 2020Q1

REPORT INFORMATION
  Report Type: Spontaneous
  Country: US (occurrence: US)
  Receive Date: 20200305
  Receipt Date: 20200305
  Transmission Date: 20200409
  Serious: Yes (Hospitalization)
  Sender: FDA-Public Use
  Company Number: None

PATIENT
  Age: 60 Year
  Sex: Female

DRUGS (17)
  1. FOLIC ACID. [Concomitant]
     Active Substance: FOLIC ACID
  2. SIMPONI [Suspect]
     Active Substance: GOLIMUMAB
     Indication: RHEUMATOID ARTHRITIS
     Dosage: ?          OTHER DOSE:50MG/0.5ML;?
     Route: 058
     Dates: start: 20190905
  3. CLONIDINE. [Concomitant]
     Active Substance: CLONIDINE
  4. LISINOPRIL. [Concomitant]
     Active Substance: LISINOPRIL
  5. METFORMIN [Concomitant]
     Active Substance: METFORMIN HYDROCHLORIDE
  6. METHOTREXATE. [Concomitant]
     Active Substance: METHOTREXATE
  7. ONDANSETRON [Concomitant]
     Active Substance: ONDANSETRON
  8. LEFUMOMIDE [Concomitant]
  9. OMEPRAZOLE. [Concomitant]
     Active Substance: OMEPRAZOLE
  10. VITAMIN D3 [Concomitant]
     Active Substance: CHOLECALCIFEROL
  11. SULFASALZIN [Concomitant]
  12. OXETIRIZINE [Concomitant]
  13. HYDROCO/APAP [Concomitant]
     Active Substance: ACETAMINOPHEN\HYDROCODONE
  14. SPIRONOLACT [Concomitant]
     Active Substance: SPIRONOLACTONE
  15. ATORVASTATIN [Concomitant]
     Active Substance: ATORVASTATIN
  16. ALENDRONATE [Concomitant]
     Active Substance: ALENDRONATE SODIUM
  17. NIFEDIPINE. [Concomitant]
     Active Substance: NIFEDIPINE

REACTIONS (1)
  - Hypertension [None]

NARRATIVE: CASE EVENT DATE: 20200219
